FAERS Safety Report 5082090-9 (Version None)
Quarter: 2006Q3

REPORT INFORMATION
  Report Type: 
  Country: None (occurrence: None)
  Receive Date: 20060815
  Receipt Date: 20060815
  Transmission Date: 20061208
  Serious: Yes (Other)
  Sender: FDA-Public Use
  Company Number: None

PATIENT
  Age: 66 Year
  Sex: Male

DRUGS (12)
  1. FORTEO [Suspect]
     Indication: OSTEOPOROSIS
     Dosage: INJECT DAILY
     Dates: start: 20041201
  2. METHOTREXATE [Concomitant]
  3. NIFEDICAL [Concomitant]
  4. FOLTX [Concomitant]
  5. CLOPIDOGREL [Concomitant]
  6. DESONIDE [Concomitant]
  7. NIASAPAN [Concomitant]
  8. LANOXIN [Concomitant]
  9. PREDNISONE [Concomitant]
  10. HYDROXYCHLOROQUINE SULFATE [Concomitant]
  11. NEXIUM [Concomitant]
  12. SYNTHROID [Concomitant]

REACTIONS (1)
  - HYPOAESTHESIA FACIAL [None]
